FAERS Safety Report 5094204-5 (Version None)
Quarter: 2006Q3

REPORT INFORMATION
  Report Type: 
  Country: None (occurrence: None)
  Receive Date: 20060831
  Receipt Date: 20060529
  Transmission Date: 20061208
  Serious: Yes (Other)
  Sender: FDA-Public Use
  Company Number: PHNU2006DE02118

PATIENT
  Age: 68 Year
  Sex: Female

DRUGS (8)
  1. ZOMETA [Suspect]
     Indication: METASTASES TO BONE
     Dosage: 4 MG, QMO
     Dates: start: 20050901
  2. FEMARA [Concomitant]
     Indication: BREAST CANCER METASTATIC
     Dosage: 2.5 MG, QD
     Route: 048
     Dates: start: 20050901
  3. BISOPROLOL FUMARATE [Concomitant]
     Indication: ARRHYTHMIA
     Dosage: 5 MG, BID
     Route: 048
     Dates: start: 20060701
  4. BETA-ACETYLDIGOXIN [Concomitant]
     Indication: ARRHYTHMIA
     Dosage: 0.2 MG, QD
     Route: 065
     Dates: start: 20060701
  5. CHLORHEXIDINE [Concomitant]
     Dosage: 1 DF, BID
     Route: 048
     Dates: start: 20050101
  6. MARCUMAR [Concomitant]
     Route: 048
     Dates: start: 20060701
  7. NOVALGIN [Concomitant]
     Indication: METASTASES TO BONE
     Dosage: UNK, PRN
     Route: 048
     Dates: start: 20050901
  8. OMEPRAZOLE [Concomitant]
     Dosage: 20 MG, QD
     Route: 048
     Dates: start: 20060501

REACTIONS (9)
  - BONE FORMATION DECREASED [None]
  - CARDIAC PACEMAKER INSERTION [None]
  - DENTAL NECROSIS [None]
  - GINGIVITIS [None]
  - RASH [None]
  - TOOTH DISORDER [None]
  - TOOTH INFECTION [None]
  - TOOTHACHE [None]
  - VAGINAL INFLAMMATION [None]
